FAERS Safety Report 9697780 (Version 1)
Quarter: 2013Q4

REPORT INFORMATION
  Report Type: Spontaneous
  Country: GB (occurrence: None)
  Receive Date: 20131118
  Receipt Date: 20131118
  Transmission Date: 20140711
  Serious: Yes (Other)
  Sender: FDA-Public Use
  Company Number: FK2011304909

PATIENT
  Age: 60 Year
  Sex: Male
  Weight: 86.9 kg

DRUGS (3)
  1. CARBOPLATIN [Suspect]
     Indication: BLADDER CANCER
     Dosage: 400 MG, INTRAVENOUS (NOT OTHERWISE SPECIFIED)
     Route: 042
     Dates: start: 20130718
  2. GEMCITABINE [Suspect]
     Indication: BLADDER CANCER
     Dosage: 1500 MG, INTRAVENOUS (NOT OTHERWISE SPECIFIED)
     Route: 042
     Dates: start: 20130718
  3. VANDETANIB (VANDETANIB) [Concomitant]

REACTIONS (1)
  - Deep vein thrombosis [None]
